FAERS Safety Report 15942620 (Version 3)
Quarter: 2019Q2

REPORT INFORMATION
  Report Type: Spontaneous
  Country: US (occurrence: US)
  Receive Date: 20190209
  Receipt Date: 20190412
  Transmission Date: 20190711
  Serious: Yes (Other)
  Sender: FDA-Public Use
  Company Number: US-ASTRAZENECA-2018SF64576

PATIENT
  Sex: Male
  Weight: 148.8 kg

DRUGS (18)
  1. MISOPROSTOL. [Concomitant]
     Active Substance: MISOPROSTOL
  2. COREG [Concomitant]
     Active Substance: CARVEDILOL
  3. BENICAR [Concomitant]
     Active Substance: OLMESARTAN MEDOXOMIL
  4. CELEBREX [Concomitant]
     Active Substance: CELECOXIB
  5. DESMOPRESSIN [Concomitant]
     Active Substance: DESMOPRESSIN
  6. TOVIAZ [Concomitant]
     Active Substance: FESOTERODINE FUMARATE
  7. GLYBURIDE. [Concomitant]
     Active Substance: GLYBURIDE
  8. NEXIUM [Suspect]
     Active Substance: ESOMEPRAZOLE MAGNESIUM
     Route: 048
     Dates: start: 2012, end: 2015
  9. OXYBUTYNIN. [Concomitant]
     Active Substance: OXYBUTYNIN CHLORIDE
  10. LYRICA [Concomitant]
     Active Substance: PREGABALIN
  11. COLCHICINE. [Concomitant]
     Active Substance: COLCHICINE
  12. HYDRALAZINE [Concomitant]
     Active Substance: HYDRALAZINE HYDROCHLORIDE
  13. FUROSEMIDE. [Concomitant]
     Active Substance: FUROSEMIDE
  14. LASIX [Concomitant]
     Active Substance: FUROSEMIDE
  15. CEPHALEXIN. [Concomitant]
     Active Substance: CEPHALEXIN
  16. HYDROCODON [Concomitant]
     Active Substance: HYDROCODONE
  17. ALLOPURINOL. [Concomitant]
     Active Substance: ALLOPURINOL
  18. NORVASC [Concomitant]
     Active Substance: AMLODIPINE BESYLATE

REACTIONS (3)
  - Tubulointerstitial nephritis [Unknown]
  - Acute kidney injury [Unknown]
  - Chronic kidney disease [Not Recovered/Not Resolved]
